FAERS Safety Report 5399634-X (Version None)
Quarter: 2007Q3

REPORT INFORMATION
  Report Type: 
  Country: None (occurrence: None)
  Receive Date: 20070727
  Receipt Date: 20070712
  Transmission Date: 20080115
  Serious: Yes (Death, Hospitalization, Other)
  Sender: FDA-Public Use
  Company Number: US-PFIZER INC-2007052571

PATIENT
  Sex: Male

DRUGS (2)
  1. BEXTRA [Suspect]
     Indication: BACK PAIN
     Route: 048
     Dates: start: 20020422, end: 20030206
  2. BEXTRA [Suspect]
     Indication: ARTHRALGIA

REACTIONS (2)
  - CEREBELLAR HAEMORRHAGE [None]
  - ISCHAEMIC STROKE [None]
